FAERS Safety Report 7561470-3 (Version None)
Quarter: 2011Q2

REPORT INFORMATION
  Report Type: 
  Country: None (occurrence: None)
  Receive Date: 20110621
  Receipt Date: 20110224
  Transmission Date: 20111010
  Serious: No
  Sender: FDA-Public Use
  Company Number: US-ASTRAZENECA-2011SE07355

PATIENT
  Age: 79 Year
  Sex: Female

DRUGS (3)
  1. ALBUTEROL SULFATE AUTOHALER [Concomitant]
  2. PULMICORT [Suspect]
     Route: 055
  3. CRESTOR [Suspect]
     Route: 048

REACTIONS (7)
  - DISABILITY [None]
  - GENERAL PHYSICAL HEALTH DETERIORATION [None]
  - DRY THROAT [None]
  - DYSPHONIA [None]
  - MALAISE [None]
  - THROAT IRRITATION [None]
  - INSOMNIA [None]
